FAERS Safety Report 9770788 (Version 1)
Quarter: 2013Q4

REPORT INFORMATION
  Report Type: Spontaneous
  Country: US (occurrence: US)
  Receive Date: 20131218
  Receipt Date: 20131218
  Transmission Date: 20140711
  Serious: No
  Sender: FDA-Public Use
  Company Number: US-PFIZER INC-2013360483

PATIENT
  Age: 43 Year
  Sex: Female

DRUGS (1)
  1. EFFEXOR [Suspect]
     Indication: MIGRAINE
     Dosage: UNK

REACTIONS (2)
  - Cough [Unknown]
  - Off label use [Unknown]
